FAERS Safety Report 6129684-7 (Version None)
Quarter: 2009Q1

REPORT INFORMATION
  Report Type: 
  Country: None (occurrence: None)
  Receive Date: 20090323
  Receipt Date: 20090323
  Transmission Date: 20090719
  Serious: Yes (Other)
  Sender: FDA-Public Use
  Company Number: None

PATIENT
  Age: 5 Year
  Sex: Male
  Weight: 27.2158 kg

DRUGS (4)
  1. SINGULAIR [Suspect]
     Indication: MULTIPLE ALLERGIES
     Dosage: DON'T REMEMBER: 5 MG? 1 TIME IN EVENING PO
     Route: 048
     Dates: start: 20090301, end: 20090313
  2. FLONASE [Concomitant]
  3. FLOVENT [Concomitant]
  4. CLARITIN [Concomitant]

REACTIONS (3)
  - ABNORMAL BEHAVIOUR [None]
  - AGGRESSION [None]
  - MOOD SWINGS [None]
